FAERS Safety Report 5746658-6 (Version None)
Quarter: 2008Q2

REPORT INFORMATION
  Report Type: 
  Country: None (occurrence: None)
  Receive Date: 20080522
  Receipt Date: 20080519
  Transmission Date: 20081010
  Serious: Yes (Other)
  Sender: FDA-Public Use
  Company Number: GB-JNJFOC-20080503904

PATIENT
  Age: 2 Year
  Sex: Male

DRUGS (5)
  1. IBUPROFEN [Suspect]
     Indication: ARTHRITIS
     Route: 048
  2. METHOTREXATE [Suspect]
     Indication: ARTHRITIS
     Route: 058
  3. PIROXICAM [Suspect]
     Indication: ARTHRITIS
     Route: 048
  4. IRON [Concomitant]
  5. TRIAMCINOLONE [Concomitant]

REACTIONS (3)
  - ALANINE AMINOTRANSFERASE INCREASED [None]
  - MUSCULOSKELETAL STIFFNESS [None]
  - SPONDYLITIS [None]
